FAERS Safety Report 25407905 (Version 2)
Quarter: 2025Q2

REPORT INFORMATION
  Report Type: Report from Study
  Country: JP (occurrence: JP)
  Receive Date: 20250606
  Receipt Date: 20250620
  Transmission Date: 20250717
  Serious: Yes (Hospitalization)
  Sender: MERCK SHARP & DOHME LLC
  Company Number: JP-AstrazenecaRSG-4301-D7630C00001(Prod)000001

PATIENT
  Age: 55 Year
  Sex: Female
  Weight: 52 kg

DRUGS (21)
  1. PEMBROLIZUMAB [Suspect]
     Active Substance: PEMBROLIZUMAB
     Indication: Triple negative breast cancer
     Dosage: 200 MG, ONCE EVERY 3 WK
     Route: 042
     Dates: start: 20250501, end: 20250501
  2. PEMBROLIZUMAB [Suspect]
     Active Substance: PEMBROLIZUMAB
     Indication: Triple negative breast cancer
     Dosage: 200 MG, ONCE EVERY 3 WK
     Dates: start: 20250529, end: 20250529
  3. AROTINOLOL [Concomitant]
     Active Substance: AROTINOLOL
     Indication: Essential tremor
     Route: 048
     Dates: start: 2006
  4. LOXOPROFEN SODIUM [Concomitant]
     Active Substance: LOXOPROFEN SODIUM
     Indication: Cancer pain
     Route: 061
     Dates: start: 20250401
  5. LOXOPROFEN SODIUM [Concomitant]
     Active Substance: LOXOPROFEN SODIUM
     Indication: Cancer pain
     Route: 048
     Dates: start: 20250401
  6. BETAMETHASONE [Concomitant]
     Active Substance: BETAMETHASONE
     Indication: Rash
     Route: 061
     Dates: start: 20250508, end: 20250515
  7. CALONAL [Concomitant]
     Active Substance: ACETAMINOPHEN
     Indication: Pyrexia
     Route: 048
     Dates: start: 20250512, end: 20250512
  8. GRANISETRON HYDROCHLORIDE [Concomitant]
     Active Substance: GRANISETRON HYDROCHLORIDE
     Indication: Premedication
     Route: 042
     Dates: start: 20250501
  9. BETAMETHASONE DIPROPIONATE [Concomitant]
     Active Substance: BETAMETHASONE DIPROPIONATE
     Indication: Rash
     Route: 061
     Dates: start: 20250515
  10. GLYCOSAMINOGLYCANS [Concomitant]
     Active Substance: GLYCOSAMINOGLYCANS
     Indication: Rash
     Route: 061
     Dates: start: 20250515
  11. FEXOFENADINE HYDROCHLORIDE [Concomitant]
     Active Substance: FEXOFENADINE HYDROCHLORIDE
     Indication: Rash
     Dosage: 120 MG, BID
     Route: 048
     Dates: start: 20250515
  12. FEXOFENADINE HYDROCHLORIDE [Concomitant]
     Active Substance: FEXOFENADINE HYDROCHLORIDE
     Indication: Rash
     Dosage: 60 MG, BID
     Route: 048
     Dates: start: 20250508, end: 20250515
  13. GEMCITABINE [Suspect]
     Active Substance: GEMCITABINE
     Indication: Triple negative breast cancer
     Dosage: 1000 MG/M2, ONCE EVERY 3 WK
     Route: 042
     Dates: start: 20250501, end: 20250508
  14. RIVOTRIL [Concomitant]
     Active Substance: CLONAZEPAM
     Indication: Essential tremor
     Dosage: 0.5 MG, BID
     Route: 048
     Dates: start: 2006
  15. METHYLCOBALAMIN [Concomitant]
     Active Substance: METHYLCOBALAMIN
     Indication: Sensory disturbance
     Dosage: 0.5 MG, TID
     Route: 048
     Dates: start: 20221013
  16. METOCLOPRAMIDE HYDROCHLORIDE [Concomitant]
     Active Substance: METOCLOPRAMIDE HYDROCHLORIDE
     Indication: Nausea
     Route: 048
     Dates: start: 20250503
  17. VITAMINS [Concomitant]
     Active Substance: VITAMINS
     Indication: Pigmentation disorder
     Route: 048
     Dates: start: 2022
  18. PAXIL [Concomitant]
     Active Substance: PAROXETINE HYDROCHLORIDE
     Indication: Essential tremor
     Route: 048
     Dates: start: 2006
  19. DEXAMETHASONE SODIUM PHOSPHATE [Concomitant]
     Active Substance: DEXAMETHASONE SODIUM PHOSPHATE
     Indication: Premedication
     Route: 042
     Dates: start: 20250501
  20. CAMPHOR\MENTHOL [Concomitant]
     Active Substance: CAMPHOR\MENTHOL
     Indication: Rash
     Route: 061
     Dates: start: 20250506
  21. CARBOPLATIN [Suspect]
     Active Substance: CARBOPLATIN
     Indication: Triple negative breast cancer
     Route: 042
     Dates: start: 20250501, end: 20250508

REACTIONS (2)
  - Neutrophil count decreased [Recovered/Resolved]
  - Platelet count decreased [Recovered/Resolved]

NARRATIVE: CASE EVENT DATE: 20250516
